FAERS Safety Report 14306935 (Version 1)
Quarter: 2017Q4

REPORT INFORMATION
  Report Type: Report from Study
  Country: US (occurrence: US)
  Receive Date: 20171220
  Receipt Date: 20171220
  Transmission Date: 20180321
  Serious: Yes (Other)
  Sender: FDA-Public Use
  Company Number: PHEH2017US039826

PATIENT
  Sex: Male

DRUGS (5)
  1. IRBESARTAN. [Concomitant]
     Active Substance: IRBESARTAN
     Indication: PRODUCT USED FOR UNKNOWN INDICATION
     Dosage: UNK
     Route: 065
  2. AFINITOR [Suspect]
     Active Substance: EVEROLIMUS
     Indication: PRODUCT USED FOR UNKNOWN INDICATION
     Dosage: UNK
     Route: 065
     Dates: start: 201605
  3. VASOTEC [Concomitant]
     Active Substance: ENALAPRIL MALEATE
     Indication: PRODUCT USED FOR UNKNOWN INDICATION
     Route: 065
  4. LOMOTIL [Concomitant]
     Active Substance: ATROPINE SULFATE\DIPHENOXYLATE HYDROCHLORIDE
     Indication: PRODUCT USED FOR UNKNOWN INDICATION
     Dosage: UNK
     Route: 065
  5. OCTREOTIDE ACETATE. [Concomitant]
     Active Substance: OCTREOTIDE ACETATE
     Indication: PRODUCT USED FOR UNKNOWN INDICATION
     Dosage: UNK UNK, QMO
     Route: 058

REACTIONS (15)
  - Carcinoid tumour [Unknown]
  - Memory impairment [Unknown]
  - Fatigue [Unknown]
  - Headache [Unknown]
  - Metastases to lymph nodes [Unknown]
  - Blood pressure increased [Unknown]
  - Cognitive disorder [Unknown]
  - Asthenia [Unknown]
  - Neuroendocrine tumour [Unknown]
  - Metastases to liver [Unknown]
  - Heart rate increased [Unknown]
  - Diabetes mellitus [Unknown]
  - Diarrhoea [Unknown]
  - Flushing [Unknown]
  - Neoplasm progression [Unknown]
